FAERS Safety Report 21536796 (Version 1)
Quarter: 2022Q4

REPORT INFORMATION
  Report Type: Spontaneous
  Country: RO (occurrence: RO)
  Receive Date: 20221101
  Receipt Date: 20221101
  Transmission Date: 20230113
  Serious: Yes (Life-Threatening)
  Sender: FDA-Public Use
  Company Number: None

PATIENT
  Age: 65 Year
  Sex: Male

DRUGS (9)
  1. OXALIPLATIN [Suspect]
     Active Substance: OXALIPLATIN
     Indication: Rectal neoplasm
     Dosage: UNIT DOSE - 217 MG
     Route: 042
     Dates: start: 20221013, end: 20221013
  2. Dexametazona 8mg/2ml [Concomitant]
     Indication: Product used for unknown indication
     Route: 042
  3. VITAMINA B1 [Concomitant]
     Indication: Product used for unknown indication
     Route: 042
  4. Loratadina 10 MG [Concomitant]
     Indication: Product used for unknown indication
     Route: 048
  5. PANTOPRAZOLE SODIUM [Concomitant]
     Active Substance: PANTOPRAZOLE SODIUM
     Indication: Product used for unknown indication
     Route: 042
  6. VITAMINA B6 [Concomitant]
     Indication: Product used for unknown indication
     Route: 042
  7. Gluconat de calciu 94 mg/ml soltie injectabila [Concomitant]
     Indication: Product used for unknown indication
     Route: 042
  8. Metoclopramid 5mg/ml [Concomitant]
     Indication: Product used for unknown indication
     Route: 042
  9. Osetron 4mg/2ml [Concomitant]
     Indication: Product used for unknown indication
     Route: 042

REACTIONS (3)
  - Vertigo [Recovered/Resolved]
  - Vision blurred [Recovered/Resolved]
  - Hypertension [Recovered/Resolved]

NARRATIVE: CASE EVENT DATE: 20221013
